FAERS Safety Report 25745085 (Version 3)
Quarter: 2025Q3

REPORT INFORMATION
  Report Type: Spontaneous
  Country: JP (occurrence: JP)
  Receive Date: 20250901
  Receipt Date: 20250922
  Transmission Date: 20251021
  Serious: Yes (Hospitalization, Other)
  Sender: BRISTOL-MYERS SQUIBB COMPANY
  Company Number: JP-BRISTOL-MYERS SQUIBB COMPANY-2024-158336

PATIENT
  Age: 46 Year
  Sex: Female
  Weight: 56.1 kg

DRUGS (9)
  1. YERVOY [Suspect]
     Active Substance: IPILIMUMAB
     Indication: Malignant melanoma
  2. OPDIVO [Suspect]
     Active Substance: NIVOLUMAB
     Indication: Malignant melanoma
  3. BRAFTOVI [Suspect]
     Active Substance: ENCORAFENIB
     Indication: Malignant melanoma
     Dates: start: 20240802, end: 20240812
  4. BRAFTOVI [Suspect]
     Active Substance: ENCORAFENIB
     Dates: start: 20241016, end: 20241215
  5. BRAFTOVI [Suspect]
     Active Substance: ENCORAFENIB
     Dates: start: 20240813, end: 20240813
  6. MEKTOVI [Suspect]
     Active Substance: BINIMETINIB
     Indication: Malignant melanoma
     Dates: start: 20240802, end: 20240812
  7. MEKTOVI [Suspect]
     Active Substance: BINIMETINIB
     Dates: start: 20241016, end: 20241215
  8. MEKTOVI [Suspect]
     Active Substance: BINIMETINIB
     Dates: start: 20240813, end: 20240813
  9. MIYA-BM [Concomitant]
     Active Substance: CLOSTRIDIUM BUTYRICUM SPORES STRAIN M-55
     Indication: Product used for unknown indication
     Dates: start: 20240805

REACTIONS (3)
  - Pyrexia [Not Recovered/Not Resolved]
  - Cytokine release syndrome [Recovered/Resolved]
  - Malaise [Recovered/Resolved]

NARRATIVE: CASE EVENT DATE: 20240101
